FAERS Safety Report 17202657 (Version 1)
Quarter: 2019Q4

REPORT INFORMATION
  Report Type: Spontaneous
  Country: US (occurrence: US)
  Receive Date: 20191226
  Receipt Date: 20191226
  Transmission Date: 20200122
  Serious: No
  Sender: FDA-Public Use
  Company Number: US-IPSEN BIOPHARMACEUTICALS, INC.-2019-25742

PATIENT
  Age: 65 Year
  Sex: Female

DRUGS (3)
  1. SOMATULINE DEPOT [Suspect]
     Active Substance: LANREOTIDE ACETATE
     Indication: CARCINOID SYNDROME
  2. SOMATULINE DEPOT [Suspect]
     Active Substance: LANREOTIDE ACETATE
     Indication: CARCINOID TUMOUR
     Dosage: DOSE NOT REPORTED
     Route: 065
     Dates: start: 2019, end: 2019
  3. PREDNISONE. [Suspect]
     Active Substance: PREDNISONE
     Dosage: NOT REPORTED
     Dates: start: 201911, end: 2019

REACTIONS (11)
  - Palatal swelling [Unknown]
  - Dehydration [Unknown]
  - Gingival discolouration [Unknown]
  - Vision blurred [Unknown]
  - Pollakiuria [Unknown]
  - Oral pain [Unknown]
  - Hypersensitivity [Unknown]
  - Flushing [Unknown]
  - Blood glucose increased [Unknown]
  - Dry mouth [Unknown]
  - Dizziness [Unknown]

NARRATIVE: CASE EVENT DATE: 201911
